FAERS Safety Report 15280880 (Version 1)
Quarter: 2018Q3

REPORT INFORMATION
  Report Type: Spontaneous
  Country: GB (occurrence: GB)
  Receive Date: 20180731
  Receipt Date: 20180731
  Transmission Date: 20181010
  Serious: Yes (Other)
  Sender: FDA-Public Use
  Company Number: None

PATIENT
  Age: 44 Year
  Sex: Male
  Weight: 70 kg

DRUGS (2)
  1. PROSCAR [Suspect]
     Active Substance: FINASTERIDE
     Indication: ALOPECIA
     Dosage: ?          OTHER ROUTE:BY MOUTH?
  2. IBUPROFEN. [Concomitant]
     Active Substance: IBUPROFEN

REACTIONS (7)
  - Erectile dysfunction [None]
  - Loss of libido [None]
  - Feeling abnormal [None]
  - Depression [None]
  - Anxiety [None]
  - Testicular pain [None]
  - Sexual dysfunction [None]

NARRATIVE: CASE EVENT DATE: 20040303
